FAERS Safety Report 15240390 (Version 1)
Quarter: 2018Q3

REPORT INFORMATION
  Report Type: Spontaneous
  Country: FR (occurrence: FR)
  Receive Date: 20180804
  Receipt Date: 20180804
  Transmission Date: 20181010
  Serious: Yes (Other)
  Sender: FDA-Public Use
  Company Number: FR-ACCORD-070239

PATIENT
  Age: 53 Year
  Sex: Female

DRUGS (1)
  1. FLUOROURACILE ACCORD [Suspect]
     Active Substance: FLUOROURACIL
     Indication: COLON CANCER
     Route: 041
     Dates: start: 20170913, end: 20170915

REACTIONS (3)
  - Infusion site extravasation [Recovered/Resolved]
  - Infusion site inflammation [Recovering/Resolving]
  - Infusion site vesicles [Recovering/Resolving]

NARRATIVE: CASE EVENT DATE: 20170914
